FAERS Safety Report 4555397-9 (Version None)
Quarter: 2005Q1

REPORT INFORMATION
  Report Type: 
  Country: None (occurrence: None)
  Receive Date: 20050118
  Receipt Date: 20050118
  Transmission Date: 20050727
  Serious: Yes (Life-Threatening)
  Sender: FDA-Public Use
  Company Number: None

PATIENT
  Age: 45 Year
  Sex: Female
  Weight: 96.6162 kg

DRUGS (2)
  1. TRICOR [Suspect]
     Indication: BLOOD TRIGLYCERIDES INCREASED
     Dosage: ONE PILL A DAY
     Dates: start: 20041208, end: 20050111
  2. CELEXA [Concomitant]

REACTIONS (2)
  - CHROMATURIA [None]
  - HEPATIC FUNCTION ABNORMAL [None]
